FAERS Safety Report 18213397 (Version 1)
Quarter: 2020Q3

REPORT INFORMATION
  Report Type: Spontaneous
  Country: US (occurrence: US)
  Receive Date: 20200831
  Receipt Date: 20200831
  Transmission Date: 20201103
  Serious: Yes (Disabling)
  Sender: FDA-Public Use
  Company Number: None

PATIENT
  Age: 30 Year
  Sex: Female
  Weight: 54.43 kg

DRUGS (2)
  1. PARAGARD T 380A [Suspect]
     Active Substance: COPPER
     Dates: start: 20170815, end: 20180717
  2. BUPROPION XL [Concomitant]
     Active Substance: BUPROPION

REACTIONS (3)
  - Dyspareunia [None]
  - Bladder pain [None]
  - Embedded device [None]

NARRATIVE: CASE EVENT DATE: 20170108
